FAERS Safety Report 5809107-5 (Version None)
Quarter: 2008Q3

REPORT INFORMATION
  Report Type: 
  Country: None (occurrence: None)
  Receive Date: 20080714
  Receipt Date: 20080707
  Transmission Date: 20090109
  Serious: Yes (Hospitalization)
  Sender: FDA-Public Use
  Company Number: US-GENENTECH-264070

PATIENT
  Sex: Female

DRUGS (1)
  1. RITUXAN [Suspect]
     Indication: THROMBOTIC THROMBOCYTOPENIC PURPURA
     Dosage: UNK, SINGLE
     Dates: start: 20080705

REACTIONS (3)
  - CATHETER RELATED INFECTION [None]
  - ENCEPHALOPATHY [None]
  - PLATELET COUNT DECREASED [None]
